FAERS Safety Report 25575514 (Version 2)
Quarter: 2025Q4

REPORT INFORMATION
  Report Type: Spontaneous
  Country: TR (occurrence: TR)
  Receive Date: 20250718
  Receipt Date: 20251015
  Transmission Date: 20260118
  Serious: Yes (Other)
  Sender: BRISTOL-MYERS SQUIBB COMPANY
  Company Number: TR-BRISTOL-MYERS SQUIBB COMPANY-2025-099678

PATIENT
  Age: 9 Year
  Sex: Male

DRUGS (1)
  1. ORENCIA [Suspect]
     Active Substance: ABATACEPT
     Indication: Arthritis

REACTIONS (2)
  - Circumstance or information capable of leading to medication error [Unknown]
  - Uveitis [Unknown]
